FAERS Safety Report 16333884 (Version 3)
Quarter: 2019Q2

REPORT INFORMATION
  Report Type: Spontaneous
  Country: JP (occurrence: JP)
  Receive Date: 20190520
  Receipt Date: 20190628
  Transmission Date: 20190711
  Serious: Yes (Other)
  Sender: FDA-Public Use
  Company Number: JP-JNJFOC-20190519198

PATIENT
  Age: 87 Year
  Sex: Male

DRUGS (4)
  1. ZYTIGA [Suspect]
     Active Substance: ABIRATERONE ACETATE
     Indication: PROSTATE CANCER
     Route: 048
     Dates: start: 20180409, end: 20180809
  2. PREDNISOLONE. [Concomitant]
     Active Substance: PREDNISOLONE
     Indication: PROSTATE CANCER
     Route: 048
     Dates: start: 20180409, end: 20180809
  3. DEGARELIX ACETATE [Concomitant]
     Active Substance: DEGARELIX ACETATE
     Indication: PROSTATE CANCER
     Route: 058
  4. DEGARELIX ACETATE [Concomitant]
     Active Substance: DEGARELIX ACETATE
     Route: 058

REACTIONS (8)
  - Hypokalaemia [Unknown]
  - Sepsis [Unknown]
  - Pollakiuria [Unknown]
  - Pyelonephritis acute [Unknown]
  - Hyperbilirubinaemia [Unknown]
  - Ureterolithiasis [Unknown]
  - Nephrolithiasis [Unknown]
  - Micturition urgency [Unknown]

NARRATIVE: CASE EVENT DATE: 20180517
